FAERS Safety Report 26085793 (Version 2)
Quarter: 2025Q4

REPORT INFORMATION
  Report Type: Report from Study
  Country: JP (occurrence: JP)
  Receive Date: 20251125
  Receipt Date: 20251224
  Transmission Date: 20260118
  Serious: Yes (Hospitalization)
  Sender: RADIUS PHARM
  Company Number: JP-RADIUS HEALTH INC.-JP-RADIUS-25055930

PATIENT
  Age: 81 Year
  Sex: Female

DRUGS (2)
  1. ABALOPARATIDE [Suspect]
     Active Substance: ABALOPARATIDE
     Indication: Osteoporosis
     Dosage: 80 MICROGRAM, QD
     Route: 058
     Dates: start: 20251004
  2. OPALMON [Concomitant]
     Active Substance: LIMAPROST
     Indication: Lumbar spinal stenosis
     Dosage: 15 MICROGRAM, QD
     Route: 048
     Dates: start: 2010

REACTIONS (2)
  - Compression fracture [Recovering/Resolving]
  - Injection site haemorrhage [Recovered/Resolved]

NARRATIVE: CASE EVENT DATE: 20251007
